FAERS Safety Report 4317355-9 (Version None)
Quarter: 2004Q1

REPORT INFORMATION
  Report Type: 
  Country: None (occurrence: None)
  Receive Date: 20040305
  Receipt Date: 20040119
  Transmission Date: 20041129
  Serious: No
  Sender: FDA-Public Use
  Company Number: US-SHR-04-020324

PATIENT
  Age: 55 Year
  Sex: Female

DRUGS (1)
  1. CAMPATH [Suspect]
     Indication: MYELOID METAPLASIA
     Dosage: DOSE ESCALTION, AT 12 MG, UNK
     Dates: start: 20040112

REACTIONS (1)
  - BRADYCARDIA [None]
